FAERS Safety Report 14638753 (Version 1)
Quarter: 2018Q1

REPORT INFORMATION
  Report Type: Spontaneous
  Country: FR (occurrence: FR)
  Receive Date: 20180315
  Receipt Date: 20180315
  Transmission Date: 20180509
  Serious: Yes (Other)
  Sender: FDA-Public Use
  Company Number: FR-MERCK KGAA-2043741

PATIENT
  Age: 58 Year
  Sex: Female
  Weight: 60 kg

DRUGS (1)
  1. NOVOTHYROX [Suspect]
     Active Substance: LEVOTHYROXINE SODIUM
     Indication: HYPOTHYROIDISM
     Route: 048

REACTIONS (13)
  - Chills [None]
  - Affective disorder [None]
  - Angioedema [None]
  - Stress [None]
  - Psychiatric symptom [None]
  - Weight increased [None]
  - Fear [None]
  - Alopecia [None]
  - Constipation [None]
  - Rash [None]
  - Abdominal pain upper [None]
  - Discomfort [None]
  - Nausea [None]

NARRATIVE: CASE EVENT DATE: 20170803
